FAERS Safety Report 17779596 (Version 1)
Quarter: 2020Q2

REPORT INFORMATION
  Report Type: Spontaneous
  Country: US (occurrence: US)
  Receive Date: 20200514
  Receipt Date: 20200514
  Transmission Date: 20200714
  Serious: No
  Sender: FDA-Public Use
  Company Number: US-TEVA-07-000515

PATIENT
  Sex: Female
  Weight: 61.22 kg

DRUGS (2)
  1. LOESTRIN 24 FE [Suspect]
     Active Substance: ETHINYL ESTRADIOL\NORETHINDRONE ACETATE
     Dosage: 20/1000UG, QD
     Route: 048
     Dates: start: 200610
  2. RETIN-A [Concomitant]
     Active Substance: TRETINOIN
     Route: 061

REACTIONS (1)
  - Pregnancy [Unknown]
